FAERS Safety Report 16899690 (Version 1)
Quarter: 2019Q4

REPORT INFORMATION
  Report Type: Spontaneous
  Country: US (occurrence: US)
  Receive Date: 20191008
  Receipt Date: 20191008
  Transmission Date: 20200122
  Serious: Yes (Life-Threatening, Hospitalization, Disabling, Other)
  Sender: FDA-Public Use
  Company Number: None

PATIENT
  Age: 24 Year
  Sex: Female
  Weight: 49.5 kg

DRUGS (2)
  1. DEXAGEL [Suspect]
     Active Substance: DEXAMETHASONE SODIUM PHOSPHATE
     Indication: DERMATITIS ALLERGIC
     Dosage: ?          QUANTITY:2 TEASPOON(S);?
     Route: 061
     Dates: start: 20190401, end: 20190531
  2. DOXYCYCLINE. [Concomitant]
     Active Substance: DOXYCYCLINE

REACTIONS (8)
  - Scab [None]
  - Pain of skin [None]
  - Skin burning sensation [None]
  - Steroid withdrawal syndrome [None]
  - Pruritus [None]
  - Blister [None]
  - Staphylococcal infection [None]
  - Skin discharge [None]

NARRATIVE: CASE EVENT DATE: 20190615
